FAERS Safety Report 21522032 (Version 2)
Quarter: 2022Q4

REPORT INFORMATION
  Report Type: Spontaneous
  Country: CA (occurrence: CA)
  Receive Date: 20221028
  Receipt Date: 20221102
  Transmission Date: 20230113
  Serious: Yes (Other)
  Sender: FDA-Public Use
  Company Number: CA-PFIZER INC-202201262105

PATIENT
  Age: 28 Year
  Sex: Female

DRUGS (3)
  1. METHOTREXATE SODIUM [Suspect]
     Active Substance: METHOTREXATE SODIUM
     Indication: Rheumatoid arthritis
     Dosage: 1 DF
  2. METHOTREXATE SODIUM [Suspect]
     Active Substance: METHOTREXATE SODIUM
     Dosage: 20 MG, WEEKLY DISCONTINUED
     Route: 065
     Dates: end: 202106
  3. PREDNISONE [Concomitant]
     Active Substance: PREDNISONE
     Dosage: UNKNOWN DOSE
     Route: 065

REACTIONS (12)
  - Pulmonary oedema [Unknown]
  - Pulmonary fibrosis [Unknown]
  - Interstitial lung disease [Unknown]
  - Bronchiectasis [Unknown]
  - Arthralgia [Unknown]
  - Condition aggravated [Unknown]
  - Pain [Unknown]
  - Fatigue [Unknown]
  - Dyspnoea [Unknown]
  - Lung disorder [Unknown]
  - Lung opacity [Unknown]
  - Pleural disorder [Unknown]

NARRATIVE: CASE EVENT DATE: 20210601
